FAERS Safety Report 21411484 (Version 1)
Quarter: 2022Q4

REPORT INFORMATION
  Report Type: Spontaneous
  Country: US (occurrence: None)
  Receive Date: 20221005
  Receipt Date: 20221005
  Transmission Date: 20230112
  Serious: Yes (Other)
  Sender: FDA-Public Use
  Company Number: None

PATIENT
  Age: 67 Year
  Sex: Female
  Weight: 63.9 kg

DRUGS (2)
  1. CAPECITABINE [Suspect]
     Active Substance: CAPECITABINE
     Indication: Pancreatic carcinoma
     Dosage: FREQUENCY : TWICE A DAY;?
     Route: 048
     Dates: start: 20220831, end: 20220920
  2. GEMCITABINE [Suspect]
     Active Substance: GEMCITABINE
     Indication: Pancreatic carcinoma
     Dosage: OTHER FREQUENCY : DAY 1, 8, 15 Q28D;?
     Route: 042
     Dates: start: 20220906

REACTIONS (5)
  - Neutrophil count decreased [None]
  - Therapy interrupted [None]
  - Neutropenia [None]
  - Diarrhoea [None]
  - Neutropenic colitis [None]

NARRATIVE: CASE EVENT DATE: 20220913
